FAERS Safety Report 19953656 (Version 4)
Quarter: 2021Q4

REPORT INFORMATION
  Report Type: Spontaneous
  Country: US (occurrence: US)
  Receive Date: 20211013
  Receipt Date: 20211121
  Transmission Date: 20220303
  Serious: No
  Sender: FDA-Public Use
  Company Number: US-JNJFOC-20211013850

PATIENT
  Age: 29 Year
  Sex: Male

DRUGS (1)
  1. TREMFYA [Suspect]
     Active Substance: GUSELKUMAB
     Indication: Psoriasis
     Route: 058
     Dates: start: 20211007

REACTIONS (7)
  - Device malfunction [Unknown]
  - Product dose omission issue [Unknown]
  - Injection site pain [Not Recovered/Not Resolved]
  - Injection site bruising [Unknown]
  - Accidental exposure to product [Unknown]
  - Psoriasis [Unknown]
  - Movement disorder [Unknown]

NARRATIVE: CASE EVENT DATE: 20210101
